FAERS Safety Report 8821511 (Version 1)
Quarter: 2012Q4

REPORT INFORMATION
  Report Type: 
  Country: US (occurrence: US)
  Receive Date: 20121002
  Receipt Date: 20121002
  Transmission Date: 20130627
  Serious: Yes (Hospitalization)
  Sender: FDA-Public Use
  Company Number: US-PFIZER INC-2012216676

PATIENT
  Age: 72 Year
  Sex: Female
  Weight: 58.96 kg

DRUGS (14)
  1. AMLODIPINE BESILATE [Suspect]
     Indication: BLOOD PRESSURE ABNORMAL
     Dosage: 5 mg, daily in the morning
     Route: 048
  2. ARTHROTEC [Suspect]
     Indication: ARTHRITIS
     Dosage: 200 ug/50 mg , 2x/day
     Route: 048
  3. EFFEXOR [Suspect]
     Indication: DEPRESSION
     Dosage: 100 mg, 3x/day (half a tablet in the morning, half a tablet in the afternoon and one tablet at nigh)
     Route: 048
  4. PREMARIN [Suspect]
     Indication: VULVOVAGINAL DRYNESS
     Dosage: UNK, daily at night
     Route: 067
  5. PREMARIN [Suspect]
     Indication: HORMONE THERAPY
     Dosage: 0.625 mg, daily
     Route: 048
  6. SYNTHROID [Concomitant]
     Indication: THYROID DISORDER
     Dosage: 88 ug, daily
     Route: 048
  7. HYDROCHLOROTHIAZIDE [Concomitant]
     Indication: BLOOD PRESSURE ABNORMAL
     Dosage: 25 mg, daily
  8. ALPRAZOLAM [Concomitant]
     Dosage: 2 mg, 2x/day
  9. VITAMIN B12 [Concomitant]
     Dosage: 1 ml, monthly
  10. VITAMIN D [Concomitant]
     Dosage: 50.000 mg, weekly
  11. ATROVENT [Concomitant]
     Dosage: 0.3 %, 2 sprays once daily
  12. FLONASE [Concomitant]
     Dosage: 2 sprays once daily
  13. SYMBICORT [Concomitant]
     Dosage: 80/4.5 (no units provided) twice daily
  14. THERA TEARS [Concomitant]
     Indication: DRY EYE

REACTIONS (1)
  - Arthropathy [Unknown]
